FAERS Safety Report 9913692 (Version 2)
Quarter: 2014Q1

REPORT INFORMATION
  Report Type: Spontaneous
  Country: US (occurrence: US)
  Receive Date: 20140220
  Receipt Date: 20140303
  Transmission Date: 20141002
  Serious: No
  Sender: FDA-Public Use
  Company Number: US-BAXTER-2014BAX008680

PATIENT
  Age: 48 Year
  Sex: Male
  Weight: 83.99 kg

DRUGS (2)
  1. DIANEAL LOW CALCIUM [Suspect]
     Indication: RENAL FAILURE CHRONIC
     Route: 033
     Dates: start: 201401
  2. DIANEAL LOW CALCIUM [Suspect]
     Route: 033
     Dates: start: 20140218

REACTIONS (4)
  - Peritoneal dialysis complication [Unknown]
  - Abdominal pain [Unknown]
  - Discomfort [Recovered/Resolved]
  - Fluid overload [Recovered/Resolved]
